FAERS Safety Report 15221363 (Version 1)
Quarter: 2018Q3

REPORT INFORMATION
  Report Type: Spontaneous
  Country: NL (occurrence: NL)
  Receive Date: 20180731
  Receipt Date: 20180731
  Transmission Date: 20181010
  Serious: Yes (Hospitalization)
  Sender: FDA-Public Use
  Company Number: PHHY2018NL055211

PATIENT
  Age: 63 Year
  Sex: Male
  Weight: 96 kg

DRUGS (9)
  1. ISOSORBIDEMONONITRAAT [Concomitant]
     Indication: PRODUCT USED FOR UNKNOWN INDICATION
     Dosage: 30 MG, QD (1DD1)
     Route: 065
  2. SIMVASTATINE [Concomitant]
     Active Substance: SIMVASTATIN
     Indication: PRODUCT USED FOR UNKNOWN INDICATION
     Dosage: 40 MG, QD (1DD1)
     Route: 065
  3. METOPROLOL SUCCINATE. [Concomitant]
     Active Substance: METOPROLOL SUCCINATE
     Indication: PRODUCT USED FOR UNKNOWN INDICATION
     Dosage: 25 MG, QD (1DD1)
     Route: 065
  4. ASCAL [Concomitant]
     Indication: PRODUCT USED FOR UNKNOWN INDICATION
     Dosage: 80 MG, QD (1DD1)
     Route: 065
  5. LISINOPRIL. [Concomitant]
     Active Substance: LISINOPRIL
     Indication: PRODUCT USED FOR UNKNOWN INDICATION
     Dosage: 40 MG, QD (1DD1)
     Route: 065
  6. ILARIS [Suspect]
     Active Substance: CANAKINUMAB
     Indication: MYOCARDIAL INFARCTION
     Dosage: 150 MG, UNK
     Route: 065
  7. PANTOPRAZOL [Concomitant]
     Active Substance: PANTOPRAZOLE SODIUM
     Indication: PRODUCT USED FOR UNKNOWN INDICATION
     Dosage: 40 MG, QD (1DD1)
     Route: 065
  8. ILARIS [Suspect]
     Active Substance: CANAKINUMAB
     Indication: C-REACTIVE PROTEIN INCREASED
  9. CITALOPRAM [Concomitant]
     Active Substance: CITALOPRAM HYDROBROMIDE
     Indication: PRODUCT USED FOR UNKNOWN INDICATION
     Dosage: 40 MG, QD (1DD1)
     Route: 065

REACTIONS (1)
  - Meningococcal sepsis [Unknown]

NARRATIVE: CASE EVENT DATE: 20180502
